FAERS Safety Report 21151625 (Version 2)
Quarter: 2022Q3

REPORT INFORMATION
  Report Type: Spontaneous
  Country: US (occurrence: None)
  Receive Date: 20220730
  Receipt Date: 20220915
  Transmission Date: 20221027
  Serious: No
  Sender: FDA-Public Use
  Company Number: 2022A271001

PATIENT
  Age: 40 Year
  Sex: Male
  Weight: 97.5 kg

DRUGS (5)
  1. SAPHNELO [Suspect]
     Active Substance: ANIFROLUMAB-FNIA
     Indication: Systemic lupus erythematosus
     Dosage: UNKNOWN
     Route: 042
     Dates: start: 20220401
  2. HYDROXYCHLOROQUINE [Concomitant]
     Active Substance: HYDROXYCHLOROQUINE
  3. VITAMIN D [Concomitant]
     Active Substance: VITAMIN D NOS
  4. TIZANIDINE [Concomitant]
     Active Substance: TIZANIDINE
  5. NADOLOL [Concomitant]
     Active Substance: NADOLOL

REACTIONS (1)
  - COVID-19 [Unknown]

NARRATIVE: CASE EVENT DATE: 20220727
